FAERS Safety Report 25617505 (Version 2)
Quarter: 2025Q3

REPORT INFORMATION
  Report Type: Spontaneous
  Country: US (occurrence: US)
  Receive Date: 20250729
  Receipt Date: 20250806
  Transmission Date: 20251021
  Serious: No
  Sender: PFIZER
  Company Number: US-PFIZER INC-PV202500090685

PATIENT

DRUGS (1)
  1. DOCETAXEL [Suspect]
     Active Substance: DOCETAXEL
     Dates: start: 20181018, end: 20190113

REACTIONS (2)
  - Lacrimal structure injury [Unknown]
  - Lacrimation increased [Unknown]
